FAERS Safety Report 22281290 (Version 2)
Quarter: 2023Q2

REPORT INFORMATION
  Report Type: Spontaneous
  Country: US (occurrence: US)
  Receive Date: 20230504
  Receipt Date: 20230613
  Transmission Date: 20230722
  Serious: Yes (Other)
  Sender: FDA-Public Use
  Company Number: US-ALVOGEN-2023091365

PATIENT
  Sex: Female

DRUGS (1)
  1. FENTANYL [Suspect]
     Active Substance: FENTANYL
     Indication: Product used for unknown indication
     Dosage: EXPIRATION DATE: UU-MAR-2025?STRENGTH: 100 MCG/HR

REACTIONS (3)
  - Neoplasm malignant [Unknown]
  - Device adhesion issue [Unknown]
  - Device malfunction [Unknown]
